FAERS Safety Report 4815714-9 (Version None)
Quarter: 2005Q4

REPORT INFORMATION
  Report Type: 
  Country: None (occurrence: None)
  Receive Date: 20051027
  Receipt Date: 20051017
  Transmission Date: 20060501
  Serious: Yes (Death, Life-Threatening, Hospitalization)
  Sender: FDA-Public Use
  Company Number: 217977

PATIENT
  Age: 63 Year
  Sex: Male
  Weight: 86 kg

DRUGS (7)
  1. MABTHERA(RITUXIMAB) CONC FOR SOLUTION FOR INFUSION [Suspect]
     Indication: B-CELL LYMPHOMA
     Dosage: 712 MG, SINGLE, INTRAVENOUS
     Route: 042
     Dates: start: 20050803, end: 20050803
  2. CYCLOPHOSPHAMIDE [Concomitant]
  3. DOXORUBICIN (DOXORUBICN, DOXORUBICIN HYDROCHLORIDE) [Concomitant]
  4. VINCRISTINE (VINCRISTIEN SULFATE) [Concomitant]
  5. PREDNISONE [Concomitant]
  6. ADRIBLASTIN (DOXORUBICIN HYDROCHLROIDE, DOXORUBICIN) [Concomitant]
  7. CYCLOPHOSPHAMIDE [Concomitant]

REACTIONS (7)
  - BONE MARROW FAILURE [None]
  - CARDIOVASCULAR INSUFFICIENCY [None]
  - CEREBRAL HAEMORRHAGE [None]
  - HAEMATOTOXICITY [None]
  - MUCOSAL INFLAMMATION [None]
  - PANCYTOPENIA [None]
  - RESPIRATORY DEPRESSION [None]
